FAERS Safety Report 5309813-5 (Version None)
Quarter: 2007Q2

REPORT INFORMATION
  Report Type: 
  Country: None (occurrence: None)
  Receive Date: 20070427
  Receipt Date: 20070417
  Transmission Date: 20071010
  Serious: Yes (Other)
  Sender: FDA-Public Use
  Company Number: JP-ROCHE-485114

PATIENT
  Age: 28 Year
  Sex: Male

DRUGS (4)
  1. TAMIFLU [Suspect]
     Indication: INFLUENZA
     Route: 048
     Dates: start: 20070217, end: 20070217
  2. CLARITHROMYCIN [Concomitant]
     Route: 048
     Dates: start: 20070217
  3. LOXONIN [Concomitant]
     Route: 048
     Dates: start: 20070217
  4. SELBEX [Concomitant]
     Route: 048
     Dates: start: 20070217

REACTIONS (2)
  - DELIRIUM [None]
  - DEPRESSED LEVEL OF CONSCIOUSNESS [None]
